FAERS Safety Report 25994892 (Version 1)
Quarter: 2025Q4

REPORT INFORMATION
  Report Type: Spontaneous
  Country: US (occurrence: US)
  Receive Date: 20251104
  Receipt Date: 20251104
  Transmission Date: 20260117
  Serious: Yes (Hospitalization, Other)
  Sender: MELINTA THERAPEUTICS
  Company Number: US-MELINTA THERAPEUTICS, LLC-US-MLNT-25-00271

PATIENT

DRUGS (7)
  1. METOPROLOL SUCCINATE [Suspect]
     Active Substance: METOPROLOL SUCCINATE
     Indication: Product used for unknown indication
     Dosage: UNK, UNK
     Route: 048
     Dates: start: 2019
  2. PLACEBO [Suspect]
     Active Substance: PLACEBO
     Indication: Cardiovascular disorder
     Dosage: UNK
     Route: 058
     Dates: start: 20230706
  3. ROSUVASTATIN [Concomitant]
     Active Substance: ROSUVASTATIN
     Indication: Product used for unknown indication
     Dosage: UNK
     Dates: start: 2013
  4. MINERALS\VITAMINS [Concomitant]
     Active Substance: MINERALS\VITAMINS
     Indication: Product used for unknown indication
     Dosage: UNK
     Dates: start: 2014
  5. FARXIGA [Concomitant]
     Active Substance: DAPAGLIFLOZIN PROPANEDIOL
     Indication: Product used for unknown indication
     Dosage: UNK
     Dates: start: 20231122
  6. LISINOPRIL [Concomitant]
     Active Substance: LISINOPRIL
     Indication: Product used for unknown indication
     Dosage: UNK
     Dates: start: 20240319
  7. ASPIRIN [Concomitant]
     Active Substance: ASPIRIN
     Indication: Product used for unknown indication
     Dosage: UNK
     Dates: start: 20250523

REACTIONS (23)
  - Haematuria [Recovered/Resolved]
  - Vascular graft stenosis [Unknown]
  - Pancreatitis acute [Unknown]
  - Cholecystitis [Unknown]
  - Urinary bladder haemorrhage [Unknown]
  - Erectile dysfunction [Not Recovered/Not Resolved]
  - Coronary arterial stent insertion [Unknown]
  - Herpes zoster [Unknown]
  - Ingrowing nail [Unknown]
  - Impaired fasting glucose [Unknown]
  - Glucose tolerance impaired [Unknown]
  - Giardiasis [Unknown]
  - Prostatic specific antigen increased [Unknown]
  - Blood urine present [Unknown]
  - Proteinuria [Unknown]
  - Urinary tract infection [Unknown]
  - Cardiac output increased [Unknown]
  - Cardiac hypertrophy [Unknown]
  - Bladder catheterisation [Unknown]
  - Bladder disorder [Unknown]
  - Calculus urinary [Unknown]
  - Transurethral prostatectomy [Unknown]
  - Prostatomegaly [Unknown]

NARRATIVE: CASE EVENT DATE: 20190607
